FAERS Safety Report 8062106-8 (Version None)
Quarter: 2012Q1

REPORT INFORMATION
  Report Type: 
  Country: None (occurrence: None)
  Receive Date: 20120118
  Receipt Date: 20120109
  Transmission Date: 20120608
  Serious: Yes (Death)
  Sender: FDA-Public Use
  Company Number: JPI-P-005726

PATIENT
  Age: 61 Year
  Sex: Female

DRUGS (6)
  1. XYREM [Suspect]
     Indication: NARCOLEPSY
     Dosage: 4.5 GM (2.25 GM, 2 IN 1 D), ORAL 6 GM (3 GM, 2 IN 1 D), ORAL 7 GM (3.5 GM, 2 IN 1 D), ORAL
     Route: 048
     Dates: start: 20030513, end: 20030501
  2. XYREM [Suspect]
     Indication: CATAPLEXY
     Dosage: 4.5 GM (2.25 GM, 2 IN 1 D), ORAL 6 GM (3 GM, 2 IN 1 D), ORAL 7 GM (3.5 GM, 2 IN 1 D), ORAL
     Route: 048
     Dates: start: 20030513, end: 20030501
  3. XYREM [Suspect]
     Indication: NARCOLEPSY
     Dosage: 4.5 GM (2.25 GM, 2 IN 1 D), ORAL 6 GM (3 GM, 2 IN 1 D), ORAL 7 GM (3.5 GM, 2 IN 1 D), ORAL
     Route: 048
     Dates: start: 20061030, end: 20081207
  4. XYREM [Suspect]
     Indication: CATAPLEXY
     Dosage: 4.5 GM (2.25 GM, 2 IN 1 D), ORAL 6 GM (3 GM, 2 IN 1 D), ORAL 7 GM (3.5 GM, 2 IN 1 D), ORAL
     Route: 048
     Dates: start: 20061030, end: 20081207
  5. XYREM [Suspect]
     Indication: NARCOLEPSY
     Dosage: 4.5 GM (2.25 GM, 2 IN 1 D), ORAL 6 GM (3 GM, 2 IN 1 D), ORAL 7 GM (3.5 GM, 2 IN 1 D), ORAL
     Route: 048
     Dates: start: 20030501
  6. XYREM [Suspect]
     Indication: CATAPLEXY
     Dosage: 4.5 GM (2.25 GM, 2 IN 1 D), ORAL 6 GM (3 GM, 2 IN 1 D), ORAL 7 GM (3.5 GM, 2 IN 1 D), ORAL
     Route: 048
     Dates: start: 20030501

REACTIONS (2)
  - LUNG CANCER METASTATIC [None]
  - DRUG EFFECT DECREASED [None]
